FAERS Safety Report 6757552-6 (Version None)
Quarter: 2010Q2

REPORT INFORMATION
  Report Type: 
  Country: None (occurrence: None)
  Receive Date: 20100607
  Receipt Date: 20100525
  Transmission Date: 20101027
  Serious: Yes (Other)
  Sender: FDA-Public Use
  Company Number: US-RB-010783-10

PATIENT
  Age: 79 Year
  Sex: Male

DRUGS (1)
  1. MUCINEX [Suspect]
     Dosage: HE TAKES ONE PILL TWICE A DAY AND HAS FOR A FEW WEEKS
     Route: 048
     Dates: start: 20100501

REACTIONS (2)
  - HAEMOPTYSIS [None]
  - INCORRECT DRUG ADMINISTRATION DURATION [None]
